FAERS Safety Report 8044740-4 (Version None)
Quarter: 2012Q1

REPORT INFORMATION
  Report Type: 
  Country: None (occurrence: None)
  Receive Date: 20120113
  Receipt Date: 20120104
  Transmission Date: 20120608
  Serious: Yes (Hospitalization)
  Sender: FDA-Public Use
  Company Number: MX-ROCHE-1007133

PATIENT
  Sex: Female
  Weight: 54 kg

DRUGS (13)
  1. HERCEPTIN [Suspect]
     Route: 042
     Dates: start: 20110923
  2. LYRICA [Concomitant]
  3. METFORMIN HCL [Concomitant]
     Route: 048
  4. CARBOPLATIN [Concomitant]
     Indication: BREAST CANCER
     Dosage: INTRAVENOUS SOLUTION
     Route: 042
     Dates: start: 20101102
  5. HERCEPTIN [Suspect]
     Route: 042
     Dates: start: 20101201
  6. CAPECITABINE [Concomitant]
     Indication: BREAST CANCER
     Route: 048
     Dates: start: 20110808
  7. METFORMIN HCL [Concomitant]
     Indication: DIABETES MELLITUS
     Route: 048
  8. HERCEPTIN [Suspect]
     Indication: BREAST CANCER
     Route: 042
     Dates: start: 20101102, end: 20101201
  9. HERCEPTIN [Suspect]
     Route: 042
     Dates: start: 20110228
  10. CLONAZEPAM [Concomitant]
     Route: 048
  11. PREDNISONE [Concomitant]
     Indication: PREMEDICATION
     Route: 048
     Dates: start: 20101225, end: 20110419
  12. DOCETAXEL [Concomitant]
     Indication: BREAST CANCER
     Route: 042
     Dates: start: 20101229
  13. OMEPRAZOLE [Concomitant]
     Indication: GASTRITIS
     Route: 048

REACTIONS (19)
  - DECREASED APPETITE [None]
  - DIABETES MELLITUS [None]
  - NAUSEA [None]
  - GASTRITIS [None]
  - NAIL DISORDER [None]
  - SURGERY [None]
  - HERPES VIRUS INFECTION [None]
  - WEIGHT DECREASED [None]
  - BACK PAIN [None]
  - DYSGEUSIA [None]
  - PALMAR-PLANTAR ERYTHRODYSAESTHESIA SYNDROME [None]
  - MASTECTOMY [None]
  - LUNG NEOPLASM [None]
  - TRAUMATIC LUNG INJURY [None]
  - INDURATION [None]
  - HERPES ZOSTER [None]
  - HEADACHE [None]
  - DYSPNOEA [None]
  - URTICARIA [None]
